FAERS Safety Report 9944677 (Version 1)
Quarter: 2014Q1

REPORT INFORMATION
  Report Type: Report from Study
  Country: US (occurrence: US)
  Receive Date: 20140303
  Receipt Date: 20140303
  Transmission Date: 20141002
  Serious: No
  Sender: FDA-Public Use
  Company Number: US-ABBVIE-13P-163-1054337-00

PATIENT
  Age: 75 Year
  Sex: Female

DRUGS (5)
  1. HUMIRA [Suspect]
     Indication: RHEUMATOID ARTHRITIS
     Dates: start: 201206
  2. SEVERAL MEDICATIONS [Concomitant]
     Indication: HYPERTENSION
  3. SEVERAL MEDICATIONS [Concomitant]
     Indication: CARDIAC DISORDER
  4. SEVERAL MEDICATIONS [Concomitant]
     Indication: DIABETES MELLITUS
  5. METHOTREXATE [Concomitant]
     Indication: PRODUCT USED FOR UNKNOWN INDICATION

REACTIONS (1)
  - Malaise [Not Recovered/Not Resolved]
